FAERS Safety Report 5167403-1 (Version None)
Quarter: 2006Q4

REPORT INFORMATION
  Report Type: 
  Country: None (occurrence: None)
  Receive Date: 20061130
  Receipt Date: 20061117
  Transmission Date: 20070319
  Serious: Yes (Other)
  Sender: FDA-Public Use
  Company Number: 2006100327

PATIENT
  Age: 58 Year
  Sex: Female

DRUGS (5)
  1. GENOTROPIN [Suspect]
     Indication: HYPOPITUITARISM
     Dosage: 0.2 MCG (0.2 MCG, 1 IN 1 D), SUBCUTANEOUS
     Route: 058
     Dates: start: 20060728, end: 20060817
  2. THYROID TAB [Suspect]
     Dosage: 3.5 GRAM, SUBLINGUAL
     Route: 060
     Dates: end: 20060824
  3. THYROID TAB [Concomitant]
  4. HYDROCORTISONE [Concomitant]
  5. DEHYDROEPIANDROSTERONE (PRASTERONE) [Concomitant]

REACTIONS (11)
  - BRAIN OEDEMA [None]
  - DIZZINESS [None]
  - EMOTIONAL DISORDER [None]
  - HEADACHE [None]
  - LACRIMATION INCREASED [None]
  - NAUSEA [None]
  - PAIN [None]
  - RESPIRATORY DISORDER [None]
  - SINUS DISORDER [None]
  - VISUAL DISTURBANCE [None]
  - WEIGHT INCREASED [None]
